FAERS Safety Report 4682522-1 (Version None)
Quarter: 2005Q2

REPORT INFORMATION
  Report Type: 
  Country: None (occurrence: None)
  Receive Date: 20050606
  Receipt Date: 20050310
  Transmission Date: 20051028
  Serious: Yes (Hospitalization, Other)
  Sender: FDA-Public Use
  Company Number: US-MERCK-0503USA02356

PATIENT
  Age: 74 Year
  Sex: Female
  Weight: 43 kg

DRUGS (6)
  1. VIOXX [Suspect]
     Indication: ARTHRITIS
     Route: 048
     Dates: start: 20010601, end: 20040101
  2. ARICEPT [Concomitant]
     Route: 065
  3. LOVASTATIN [Concomitant]
     Route: 065
     Dates: start: 20030101
  4. ADVIL [Concomitant]
     Route: 065
  5. TYLENOL (CAPLET) [Concomitant]
     Route: 065
  6. GINKGO BILOBA EXTRACT [Concomitant]
     Route: 065
     Dates: start: 20020101, end: 20050101

REACTIONS (9)
  - ACUTE MYOCARDIAL INFARCTION [None]
  - BLOOD CHOLESTEROL INCREASED [None]
  - CARDIAC DISORDER [None]
  - CEREBRAL INFARCTION [None]
  - CEREBROVASCULAR ACCIDENT [None]
  - DEMENTIA ALZHEIMER'S TYPE [None]
  - EMOTIONAL DISTRESS [None]
  - JOINT INJURY [None]
  - SINUSITIS [None]
